FAERS Safety Report 9139306 (Version 2)
Quarter: 2013Q2

REPORT INFORMATION
  Report Type: Spontaneous
  Country: US (occurrence: US)
  Receive Date: 20130305
  Receipt Date: 20130403
  Transmission Date: 20140414
  Serious: Yes (Other)
  Sender: FDA-Public Use
  Company Number: PHEH2013US005005

PATIENT
  Sex: Male

DRUGS (7)
  1. TEGRETOL [Suspect]
     Dosage: UNK UKN, UNK
  2. CARBAMAZEPINE [Suspect]
     Dosage: UNK UKN, UNK
  3. PHENOBARBITAL [Concomitant]
     Dosage: UNK UKN, UNK
  4. DEPAKOTE [Concomitant]
     Dosage: UNK UKN, UNK
  5. CLORAZEPATE [Concomitant]
     Dosage: UNK UKN, UNK
  6. TOPIRAMATE [Concomitant]
     Dosage: UNK UKN, UNK
  7. ENALAPRIL MALEATE [Concomitant]
     Dosage: UNK UKN, UNK

REACTIONS (1)
  - Convulsion [Unknown]
